FAERS Safety Report 23050821 (Version 2)
Quarter: 2023Q4

REPORT INFORMATION
  Report Type: Spontaneous
  Country: NL (occurrence: NL)
  Receive Date: 20231010
  Receipt Date: 20231020
  Transmission Date: 20240110
  Serious: Yes (Death, Life-Threatening, Hospitalization)
  Sender: FDA-Public Use
  Company Number: None

PATIENT
  Age: 52 Year
  Sex: Female
  Weight: 79.5 kg

DRUGS (14)
  1. AMOXICILLIN [Suspect]
     Active Substance: AMOXICILLIN
     Indication: Helicobacter infection
     Dosage: 1000 MILLIGRAM, BID
     Route: 065
     Dates: start: 20230829, end: 20230904
  2. PANTOPRAZOLE [Suspect]
     Active Substance: PANTOPRAZOLE
     Indication: Helicobacter infection
     Dosage: 40 MILLIGRAM, BID
     Route: 065
     Dates: start: 20230829, end: 20230904
  3. CLARITHROMYCIN [Suspect]
     Active Substance: CLARITHROMYCIN
     Indication: Helicobacter infection
     Dosage: 500 MILLIGRAM, BID (2DD)
     Route: 065
     Dates: start: 20230829, end: 20230904
  4. CLARITHROMYCIN [Suspect]
     Active Substance: CLARITHROMYCIN
     Dosage: 500 MILLIGRAM, BID (2DD)
     Route: 065
     Dates: start: 20230830, end: 20230906
  5. AMOXICILLIN [Suspect]
     Active Substance: AMOXICILLIN
     Indication: Helicobacter infection
     Dosage: 1000 MILLIGRAM, BID
     Route: 065
     Dates: start: 20230830, end: 20230906
  6. TRAMADOL HCL [Concomitant]
     Active Substance: TRAMADOL HYDROCHLORIDE
     Dosage: 3 X 1,AS NEEDED
     Route: 065
     Dates: start: 20230903, end: 20230906
  7. Ibuprofen aurobindo [Concomitant]
     Dosage: UNK
     Route: 065
  8. FLUTICASONPROPIONAAT CF [Concomitant]
     Dosage: UNK
     Route: 065
  9. ESOMEPRAZOLE [Concomitant]
     Active Substance: ESOMEPRAZOLE
     Dosage: 2 X 2 TABLET
     Route: 065
     Dates: start: 20230904
  10. RIZATRIPTAN [Concomitant]
     Active Substance: RIZATRIPTAN
     Dosage: UNK
     Route: 065
  11. OMEPRAZOLE [Concomitant]
     Active Substance: OMEPRAZOLE
     Dosage: 1 X 1
     Route: 065
     Dates: start: 20230828, end: 20230830
  12. ZOLMITRIPTAN GLENMARK [Concomitant]
     Dosage: UNK
     Route: 065
  13. Saridon [Concomitant]
     Dosage: UNK
     Route: 065
     Dates: start: 20230904
  14. AZITHROMYCIN [Concomitant]
     Active Substance: AZITHROMYCIN
     Dosage: 1 X 1
     Route: 065
     Dates: start: 20230903, end: 20230906

REACTIONS (4)
  - Pancreatitis necrotising [Fatal]
  - Intestinal ischaemia [Fatal]
  - Renal impairment [Fatal]
  - Ascites [Fatal]
